FAERS Safety Report 21809063 (Version 1)
Quarter: 2023Q1

REPORT INFORMATION
  Report Type: Report from Study
  Country: US (occurrence: US)
  Receive Date: 20230103
  Receipt Date: 20230103
  Transmission Date: 20230418
  Serious: No
  Sender: FDA-Public Use
  Company Number: US-ABBVIE-4211718

PATIENT
  Sex: Male

DRUGS (1)
  1. SKYRIZI [Suspect]
     Active Substance: RISANKIZUMAB-RZAA
     Indication: Psoriasis
     Dosage: ORIGINAL ORDER DOSE 150MG/ML PEN SQ AT WEEK 0, WEEK 4, THEN EVERY 12 WEEKS THEREAFTER?ONSET DATE ...
     Route: 058
     Dates: start: 20221011

REACTIONS (2)
  - Injection site haemorrhage [Unknown]
  - Psoriatic arthropathy [Unknown]
